FAERS Safety Report 16365139 (Version 1)
Quarter: 2019Q2

REPORT INFORMATION
  Report Type: Spontaneous
  Country: US (occurrence: US)
  Receive Date: 20190529
  Receipt Date: 20190529
  Transmission Date: 20190711
  Serious: Yes (Other)
  Sender: FDA-Public Use
  Company Number: US-GLAXOSMITHKLINE-US2019092953

PATIENT
  Sex: Male

DRUGS (1)
  1. 4 WAY UNKNOWN [Suspect]
     Active Substance: XYLOMETAZOLINE HYDROCHLORIDE
     Indication: PRODUCT USED FOR UNKNOWN INDICATION
     Dosage: UNK

REACTIONS (4)
  - Withdrawal syndrome [Unknown]
  - Nasal congestion [Unknown]
  - Drug dependence [Unknown]
  - Incorrect product administration duration [Unknown]
